FAERS Safety Report 11651621 (Version 3)
Quarter: 2019Q4

REPORT INFORMATION
  Report Type: Spontaneous
  Country: NG (occurrence: NG)
  Receive Date: 20151022
  Receipt Date: 20191018
  Transmission Date: 20200122
  Serious: Yes (Other)
  Sender: FDA-Public Use
  Company Number: NG-TEVA-603027USA

PATIENT
  Sex: Female

DRUGS (1)
  1. POSTINOR-2 [Suspect]
     Active Substance: LEVONORGESTREL
     Indication: PRODUCT USED FOR UNKNOWN INDICATION
     Route: 065

REACTIONS (3)
  - Maternal exposure during pregnancy [Unknown]
  - Haemorrhage in pregnancy [Unknown]
  - Inappropriate schedule of product administration [Unknown]
